FAERS Safety Report 7652378-3 (Version None)
Quarter: 2011Q3

REPORT INFORMATION
  Report Type: 
  Country: None (occurrence: None)
  Receive Date: 20110803
  Receipt Date: 20110705
  Transmission Date: 20111222
  Serious: Yes (Other)
  Sender: FDA-Public Use
  Company Number: BR-PFIZER INC-2011097182

PATIENT
  Age: 39 Year
  Sex: Female
  Weight: 62 kg

DRUGS (3)
  1. PANTOPRAZOLE [Suspect]
     Indication: GASTROOESOPHAGEAL REFLUX DISEASE
  2. PANTOPRAZOLE [Suspect]
     Indication: OESOPHAGITIS
     Dosage: 40 MG, 1X/DAY
     Route: 048
     Dates: start: 20110407, end: 20110410
  3. PANTOPRAZOLE [Suspect]
     Indication: GASTRITIS

REACTIONS (6)
  - FEELING HOT [None]
  - BACK PAIN [None]
  - RASH [None]
  - CHEST PAIN [None]
  - PERIPHERAL COLDNESS [None]
  - BURNING SENSATION [None]
